FAERS Safety Report 7459369-6 (Version None)
Quarter: 2011Q2

REPORT INFORMATION
  Report Type: 
  Country: None (occurrence: None)
  Receive Date: 20110504
  Receipt Date: 20110504
  Transmission Date: 20111010
  Serious: Yes (Life-Threatening)
  Sender: FDA-Public Use
  Company Number: None

PATIENT
  Sex: Female
  Weight: 47.6277 kg

DRUGS (2)
  1. CIPROFLOXACIN [Suspect]
     Indication: COLITIS
     Dosage: 1 DAY ONLY TWICE
     Dates: start: 20110403
  2. METRONIDAZOLE [Suspect]
     Dosage: 4 DAY TWICE
     Dates: start: 20110403

REACTIONS (5)
  - DIZZINESS [None]
  - CHEST PAIN [None]
  - SPEECH DISORDER [None]
  - HEADACHE [None]
  - HALLUCINATION [None]
